FAERS Safety Report 14757173 (Version 1)
Quarter: 2018Q2

REPORT INFORMATION
  Report Type: Spontaneous
  Country: US (occurrence: US)
  Receive Date: 20180413
  Receipt Date: 20180413
  Transmission Date: 20180711
  Serious: No
  Sender: FDA-Public Use
  Company Number: US-BION-006628

PATIENT
  Sex: Female

DRUGS (1)
  1. NAPROXEN SODIUM 220 MG SOFTGEL UNKNOWN PRODUCT [Suspect]
     Active Substance: NAPROXEN SODIUM
     Indication: PRODUCT USED FOR UNKNOWN INDICATION
     Dosage: STRENGTH: 220 MG

REACTIONS (4)
  - Drug effect delayed [Not Recovered/Not Resolved]
  - Poor quality drug administered [Not Recovered/Not Resolved]
  - Expired product administered [Not Recovered/Not Resolved]
  - Product physical consistency issue [Unknown]
